FAERS Safety Report 11837256 (Version 3)
Quarter: 2016Q1

REPORT INFORMATION
  Report Type: Spontaneous
  Country: US (occurrence: US)
  Receive Date: 20151215
  Receipt Date: 20160127
  Transmission Date: 20160525
  Serious: No
  Sender: FDA-Public Use
  Company Number: US-PFIZER INC-2015422426

PATIENT
  Age: 73 Year
  Sex: Female

DRUGS (2)
  1. IBRANCE [Suspect]
     Active Substance: PALBOCICLIB
     Indication: BREAST CANCER STAGE IV
     Dosage: 125 MG, CYCLIC (21 DAYS, THEN 7 DAYS OFF)
     Dates: start: 201503
  2. FULVESTRANT [Suspect]
     Active Substance: FULVESTRANT
     Indication: BREAST CANCER STAGE IV
     Dosage: UNK, MONTHLY (2SHOTS MONTHLY )
     Dates: start: 201510

REACTIONS (3)
  - Product use issue [Unknown]
  - Breast cancer stage IV [Unknown]
  - Disease progression [Unknown]
